FAERS Safety Report 8222754-9 (Version None)
Quarter: 2012Q1

REPORT INFORMATION
  Report Type: 
  Country: None (occurrence: None)
  Receive Date: 20120320
  Receipt Date: 20120313
  Transmission Date: 20120608
  Serious: Yes (Other)
  Sender: FDA-Public Use
  Company Number: FR-PFIZER INC-K201100424

PATIENT
  Age: 55 Year
  Sex: Female

DRUGS (6)
  1. PROGESTERONE [Suspect]
     Dosage: UNKNOWN
     Route: 065
     Dates: start: 20030101
  2. ACETAMINOPHEN W/ CODEINE [Suspect]
     Dosage: UNK
     Route: 048
     Dates: start: 20030101
  3. RAMIPRIL [Suspect]
     Dosage: 10 MG, DAILY
     Route: 048
     Dates: start: 20030101
  4. INDAPAMIDE [Suspect]
     Dosage: 1.5 MG, DAILY
     Route: 048
     Dates: start: 20030101
  5. ESTRADIOL [Suspect]
     Dosage: UNK
     Dates: start: 20030101
  6. MEDIATOR [Suspect]
     Indication: WEIGHT DECREASED
     Dosage: 3 DF, DAILY
     Route: 048
     Dates: start: 20020717, end: 20050514

REACTIONS (2)
  - MITRAL VALVE DISEASE [None]
  - AORTIC VALVE DISEASE [None]
